FAERS Safety Report 8345815-2 (Version None)
Quarter: 2012Q2

REPORT INFORMATION
  Report Type: 
  Country: None (occurrence: None)
  Receive Date: 20120509
  Receipt Date: 20120430
  Transmission Date: 20120825
  Serious: Yes (Hospitalization)
  Sender: FDA-Public Use
  Company Number: US-BRISTOL-MYERS SQUIBB COMPANY-16560146

PATIENT
  Age: 71 Year
  Sex: Female

DRUGS (3)
  1. NAPROSYN [Suspect]
     Dates: start: 20120201
  2. REBIF [Suspect]
     Indication: MULTIPLE SCLEROSIS
     Route: 058
     Dates: start: 20110404
  3. COUMADIN [Suspect]

REACTIONS (5)
  - MALAISE [None]
  - GASTROINTESTINAL ULCER HAEMORRHAGE [None]
  - VASCULAR STENOSIS [None]
  - BAND SENSATION [None]
  - DECREASED APPETITE [None]
